FAERS Safety Report 8484781-6 (Version None)
Quarter: 2012Q3

REPORT INFORMATION
  Report Type: 
  Country: None (occurrence: None)
  Receive Date: 20120703
  Receipt Date: 20120620
  Transmission Date: 20120928
  Serious: No
  Sender: FDA-Public Use
  Company Number: US-JNJFOC-20120313430

PATIENT
  Sex: Male
  Weight: 99.79 kg

DRUGS (2)
  1. DURAGESIC-100 [Suspect]
     Indication: BACK INJURY
     Route: 062
     Dates: start: 20100101, end: 20100101
  2. DURAGESIC-100 [Suspect]
     Dosage: 100MCG+100MCG+100  MCG/1 IN 48HRS/TD
     Route: 062
     Dates: start: 20100101

REACTIONS (4)
  - WRONG TECHNIQUE IN DRUG USAGE PROCESS [None]
  - HYPERHIDROSIS [None]
  - ABASIA [None]
  - PRODUCT QUALITY ISSUE [None]
